FAERS Safety Report 21779979 (Version 1)
Quarter: 2022Q4

REPORT INFORMATION
  Report Type: Report from Study
  Country: DE (occurrence: DE)
  Receive Date: 20221226
  Receipt Date: 20221226
  Transmission Date: 20230113
  Serious: Yes (Hospitalization, Other)
  Sender: FDA-Public Use
  Company Number: DE-ABBVIE-4249486

PATIENT
  Age: 25 Year
  Sex: Female
  Weight: 150 kg

DRUGS (5)
  1. SKYRIZI [Suspect]
     Active Substance: RISANKIZUMAB-RZAA
     Indication: Psoriasis
     Route: 058
     Dates: start: 2022
  2. SKYRIZI [Suspect]
     Active Substance: RISANKIZUMAB-RZAA
     Route: 058
     Dates: start: 20200603, end: 2022
  3. COSENTYX [Concomitant]
     Active Substance: SECUKINUMAB
     Indication: Product used for unknown indication
     Route: 058
     Dates: start: 201705, end: 202003
  4. LEVOTHYROXINE SODIUM [Concomitant]
     Active Substance: LEVOTHYROXINE SODIUM
     Indication: Product used for unknown indication
  5. CANDESARTAN [Concomitant]
     Active Substance: CANDESARTAN
     Indication: Product used for unknown indication

REACTIONS (15)
  - Adenoidectomy [Unknown]
  - Inflammatory marker increased [Unknown]
  - Skin plaque [Unknown]
  - Urinary tract infection [Unknown]
  - Solar dermatitis [Unknown]
  - Psoriasis [Recovered/Resolved]
  - Stress [Unknown]
  - Pain [Recovered/Resolved]
  - Arthralgia [Unknown]
  - COVID-19 [Unknown]
  - Hyperlipidaemia [Unknown]
  - Hepatic steatosis [Unknown]
  - Obesity [Unknown]
  - Hyperthyroidism [Unknown]
  - Limb operation [Unknown]

NARRATIVE: CASE EVENT DATE: 20220601
